FAERS Safety Report 14683730 (Version 1)
Quarter: 2018Q1

REPORT INFORMATION
  Report Type: Spontaneous
  Country: KR (occurrence: KR)
  Receive Date: 20180327
  Receipt Date: 20180327
  Transmission Date: 20180509
  Serious: Yes (Death)
  Sender: FDA-Public Use
  Company Number: PHHY2018KR045920

PATIENT
  Age: 32 Year
  Sex: Female

DRUGS (2)
  1. IMATINIB [Suspect]
     Active Substance: IMATINIB
     Indication: METASTASES TO HEART
  2. IMATINIB [Suspect]
     Active Substance: IMATINIB
     Indication: CHORDOMA
     Dosage: UNK
     Route: 065

REACTIONS (5)
  - Cardiac failure [Fatal]
  - Metastases to heart [Fatal]
  - Malignant neoplasm progression [Fatal]
  - Chordoma [Fatal]
  - Product use in unapproved indication [Unknown]
